FAERS Safety Report 8881091 (Version 2)
Quarter: 2013Q1

REPORT INFORMATION
  Report Type: Report from Study
  Country: US (occurrence: US)
  Receive Date: 20121101
  Receipt Date: 20130118
  Transmission Date: 20140127
  Serious: Yes (Hospitalization)
  Sender: FDA-Public Use
  Company Number: US-JNJFOC-20121013489

PATIENT
  Age: 26 Year
  Sex: Female
  Weight: 72.7 kg

DRUGS (1)
  1. APAP [Suspect]
     Indication: PRODUCT USED FOR UNKNOWN INDICATION
     Dosage: 50 500 MG TABLET AT ONCE
     Route: 048
     Dates: start: 20121021

REACTIONS (4)
  - Self-injurious ideation [Recovered/Resolved]
  - Intentional overdose [Recovered/Resolved]
  - Vomiting [Recovered/Resolved]
  - Abdominal pain [Recovered/Resolved]
